FAERS Safety Report 9875722 (Version 2)
Quarter: 2014Q1

REPORT INFORMATION
  Report Type: Other
  Country: US (occurrence: US)
  Receive Date: 20140206
  Receipt Date: 20140206
  Transmission Date: 20141002
  Serious: No
  Sender: FDA-Public Use
  Company Number: US-ACORDA-ACO_36706_2013

PATIENT
  Age: 55 Year
  Sex: Female
  Weight: 54.42 kg

DRUGS (1)
  1. AMPYRA [Suspect]
     Indication: GAIT DISTURBANCE
     Dosage: 10 MG, Q 12 HRS
     Route: 048
     Dates: start: 201306

REACTIONS (2)
  - Memory impairment [Recovered/Resolved]
  - Medication error [Recovered/Resolved]
